FAERS Safety Report 8214555-2 (Version None)
Quarter: 2012Q1

REPORT INFORMATION
  Report Type: 
  Country: None (occurrence: None)
  Receive Date: 20120313
  Receipt Date: 20120302
  Transmission Date: 20120608
  Serious: Yes (Other)
  Sender: FDA-Public Use
  Company Number: 1214630

PATIENT
  Age: 51 Year
  Sex: Female
  Weight: 97.73 kg

DRUGS (1)
  1. MEPERIDINE HYDROCHLORIDE [Suspect]
     Indication: PAIN
     Dosage: 25 MG, X1, INTRAVENOUS BOLUS
     Route: 040
     Dates: start: 20120302, end: 20120302

REACTIONS (2)
  - INFUSION SITE ERYTHEMA [None]
  - INCORRECT DRUG ADMINISTRATION RATE [None]
